FAERS Safety Report 4601434-2 (Version None)
Quarter: 2005Q1

REPORT INFORMATION
  Report Type: 
  Country: None (occurrence: None)
  Receive Date: 20050308
  Receipt Date: 20050224
  Transmission Date: 20050727
  Serious: Yes (Other)
  Sender: FDA-Public Use
  Company Number: US-GLAXOSMITHKLINE-A0547125A

PATIENT
  Age: 61 Year
  Sex: Female
  Weight: 79 kg

DRUGS (14)
  1. NICORETTE [Suspect]
     Indication: SMOKING CESSATION THERAPY
     Dosage: 7GUM PER DAY
     Route: 002
     Dates: start: 20040201
  2. THEOPHYLLINE [Concomitant]
  3. ZOCOR [Concomitant]
  4. TRICOR [Concomitant]
  5. MAXZIDE [Concomitant]
  6. ALLEGRA-D [Concomitant]
  7. FLONASE [Concomitant]
  8. LEXAPRO [Concomitant]
  9. TEGRETOL [Concomitant]
  10. PRILOSEC [Concomitant]
  11. EVISTA [Concomitant]
  12. XANAX [Concomitant]
  13. ADVAIR DISKUS 100/50 [Concomitant]
  14. SPIRIVA [Concomitant]

REACTIONS (1)
  - DIABETES MELLITUS NON-INSULIN-DEPENDENT [None]
